FAERS Safety Report 6729251-8 (Version None)
Quarter: 2010Q2

REPORT INFORMATION
  Report Type: 
  Country: None (occurrence: None)
  Receive Date: 20100517
  Receipt Date: 20100503
  Transmission Date: 20101027
  Serious: No
  Sender: FDA-Public Use
  Company Number: US-ABBOTT-10P-163-0642192-00

PATIENT
  Sex: Female

DRUGS (8)
  1. SIMCOR [Suspect]
     Indication: HIGH DENSITY LIPOPROTEIN DECREASED
     Dosage: 500/20MG AT BED TIME
     Route: 048
     Dates: start: 20100419, end: 20100430
  2. SIMCOR [Suspect]
     Indication: LOW DENSITY LIPOPROTEIN INCREASED
  3. DYNACIRC [Concomitant]
     Indication: DRUG USE FOR UNKNOWN INDICATION
     Route: 048
  4. BYSTOLIC [Concomitant]
     Indication: DRUG USE FOR UNKNOWN INDICATION
     Route: 048
  5. M.V.I. [Concomitant]
     Indication: DRUG USE FOR UNKNOWN INDICATION
  6. VITAMIN C [Concomitant]
     Indication: DRUG USE FOR UNKNOWN INDICATION
  7. ASPIRIN [Concomitant]
     Indication: DRUG USE FOR UNKNOWN INDICATION
     Route: 048
  8. VITAMIN D3 [Concomitant]
     Indication: DRUG USE FOR UNKNOWN INDICATION

REACTIONS (1)
  - MUSCLE SPASMS [None]
